FAERS Safety Report 20542394 (Version 5)
Quarter: 2022Q2

REPORT INFORMATION
  Report Type: Spontaneous
  Country: US (occurrence: US)
  Receive Date: 20220302
  Receipt Date: 20220602
  Transmission Date: 20220720
  Serious: Yes (Other)
  Sender: FDA-Public Use
  Company Number: US-INCYTE CORPORATION-2022IN001912

PATIENT

DRUGS (3)
  1. JAKAFI [Suspect]
     Active Substance: RUXOLITINIB
     Indication: Myelofibrosis
     Dosage: 15 MILLIGRAM, BID
     Route: 048
     Dates: start: 20201124
  2. JAKAFI [Suspect]
     Active Substance: RUXOLITINIB
     Dosage: 15 MILLIGRAM, BID
     Route: 048
     Dates: start: 202011
  3. JAKAFI [Suspect]
     Active Substance: RUXOLITINIB
     Dosage: 15 MILLIGRAM, BID
     Route: 048
     Dates: start: 202106

REACTIONS (7)
  - Squamous cell carcinoma [Unknown]
  - Oral mucosal discolouration [Unknown]
  - Gingival discolouration [Unknown]
  - Stomatitis [Unknown]
  - Fatigue [Unknown]
  - Gingival disorder [Unknown]
  - Oral disorder [Unknown]

NARRATIVE: CASE EVENT DATE: 20220201
